FAERS Safety Report 7938285-7 (Version None)
Quarter: 2011Q4

REPORT INFORMATION
  Report Type: 
  Country: None (occurrence: None)
  Receive Date: 20111123
  Receipt Date: 20111115
  Transmission Date: 20120403
  Serious: Yes (Congenital Anomaly)
  Sender: FDA-Public Use
  Company Number: ES-ELI_LILLY_AND_COMPANY-ES201111005504

PATIENT

DRUGS (2)
  1. HUMALOG [Suspect]
  2. HUMALOG [Suspect]
     Indication: DIABETES MELLITUS

REACTIONS (4)
  - FOETAL EXPOSURE DURING PREGNANCY [None]
  - ATRIAL SEPTAL DEFECT [None]
  - LARGE FOR DATES BABY [None]
  - ANTERIOR DISPLACED ANUS [None]
